FAERS Safety Report 9744071 (Version 1)
Quarter: 2013Q4

REPORT INFORMATION
  Report Type: Spontaneous
  Country: PL (occurrence: PL)
  Receive Date: 20131210
  Receipt Date: 20131210
  Transmission Date: 20140711
  Serious: Yes (Other)
  Sender: FDA-Public Use
  Company Number: PL-PERRIGO-13PL012331

PATIENT
  Sex: 0

DRUGS (3)
  1. ACETAMINOPHEN [Suspect]
     Indication: NASOPHARYNGITIS
     Dosage: FEW TABLETS
     Route: 065
     Dates: start: 200602
  2. IMATINIB [Suspect]
     Indication: CHRONIC MYELOID LEUKAEMIA
     Dosage: 400 MG, QD
     Route: 065
     Dates: start: 200505, end: 200602
  3. IMATINIB [Suspect]
     Dosage: 400 MG, QD
     Route: 065
     Dates: start: 200605, end: 200605

REACTIONS (1)
  - Drug-induced liver injury [Recovered/Resolved]
